FAERS Safety Report 7997567-3 (Version None)
Quarter: 2011Q4

REPORT INFORMATION
  Report Type: 
  Country: None (occurrence: None)
  Receive Date: 20111221
  Receipt Date: 20111213
  Transmission Date: 20120403
  Serious: Yes (Other)
  Sender: FDA-Public Use
  Company Number: JP-ALLERGAN-1116065US

PATIENT
  Age: 73 Year
  Sex: Female

DRUGS (4)
  1. DIAMOX SRC [Concomitant]
     Dosage: UNK
     Dates: start: 20110203
  2. LUMIGAN [Suspect]
     Indication: OPEN ANGLE GLAUCOMA
     Dosage: 2 GTT, QPM
     Route: 047
     Dates: start: 20101026
  3. AVASTIN [Concomitant]
     Dosage: UNK
     Dates: start: 20101115, end: 20101115
  4. RYSMON [Concomitant]
     Dosage: UNK
     Route: 047
     Dates: start: 20110729

REACTIONS (2)
  - VITREOUS HAEMORRHAGE [None]
  - VISUAL ACUITY REDUCED [None]
